FAERS Safety Report 7011917-6 (Version None)
Quarter: 2010Q3

REPORT INFORMATION
  Report Type: 
  Country: None (occurrence: None)
  Receive Date: 20100924
  Receipt Date: 20100914
  Transmission Date: 20110219
  Serious: Yes (Hospitalization)
  Sender: FDA-Public Use
  Company Number: US-BIOGENIDEC-2010BI031689

PATIENT
  Age: 57 Year
  Sex: Male
  Weight: 73 kg

DRUGS (4)
  1. AVONEX [Suspect]
     Indication: MULTIPLE SCLEROSIS
     Route: 030
  2. BACLOFEN [Concomitant]
     Indication: MUSCLE SPASTICITY
     Route: 048
  3. BACLOFEN [Concomitant]
     Indication: MUSCULOSKELETAL STIFFNESS
     Route: 048
  4. NYSTATIN [Concomitant]
     Indication: INFECTION PROPHYLAXIS

REACTIONS (9)
  - FEELING ABNORMAL [None]
  - FLATULENCE [None]
  - GASTRIC PERFORATION [None]
  - IRRITABILITY [None]
  - MUSCLE SPASTICITY [None]
  - MUSCULOSKELETAL STIFFNESS [None]
  - RHINORRHOEA [None]
  - THROAT IRRITATION [None]
  - VOMITING [None]
